FAERS Safety Report 4525314-6 (Version None)
Quarter: 2004Q4

REPORT INFORMATION
  Report Type: 
  Country: None (occurrence: None)
  Receive Date: 20041117
  Receipt Date: 20040414
  Transmission Date: 20050328
  Serious: Yes (Other)
  Sender: FDA-Public Use
  Company Number: 2004S1001085

PATIENT
  Age: 45 Year
  Sex: Female

DRUGS (9)
  1. CLOZAPINE [Suspect]
     Indication: SCHIZOPHRENIA
     Dosage: 300MG QD, ORAL
     Route: 048
     Dates: start: 20031022, end: 20040413
  2. CLOZAPINE [Suspect]
     Indication: SCHIZOPHRENIA
     Dosage: 300MG QD, ORAL
     Route: 048
     Dates: start: 20040416
  3. CYCLOBENZAPRINE HYDROCHLORIDE [Concomitant]
  4. DANTROLENE SODIUM [Concomitant]
  5. DIAZEPAM [Concomitant]
  6. FLUOXETINE HYDROCHLORIDE [Concomitant]
  7. NITROFURANTOIN [Concomitant]
  8. PENICILLIN [Concomitant]
  9. MULTIVITAMIN [Concomitant]

REACTIONS (1)
  - LEUKOPENIA [None]
